FAERS Safety Report 12733887 (Version 2)
Quarter: 2016Q3

REPORT INFORMATION
  Report Type: Spontaneous
  Country: BE (occurrence: BE)
  Receive Date: 20160912
  Receipt Date: 20160916
  Transmission Date: 20161109
  Serious: Yes (Death)
  Sender: FDA-Public Use
  Company Number: BE-ROCHE-1816939

PATIENT
  Sex: Male

DRUGS (2)
  1. RIVOTRIL [Suspect]
     Active Substance: CLONAZEPAM
     Indication: INSOMNIA
     Dosage: 1 - 2 MG PER DAY AT NIGHT
     Route: 065
     Dates: start: 2016
  2. LEXOTAN [Suspect]
     Active Substance: BROMAZEPAM
     Indication: PRODUCT USED FOR UNKNOWN INDICATION
     Route: 065

REACTIONS (6)
  - Pneumonia [Fatal]
  - Off label use [Unknown]
  - Coma [Fatal]
  - Sleep disorder [Unknown]
  - Confusional state [Unknown]
  - Respiratory distress [Fatal]

NARRATIVE: CASE EVENT DATE: 2016
